FAERS Safety Report 9591994 (Version 2)
Quarter: 2013Q4

REPORT INFORMATION
  Report Type: Spontaneous
  Country: CH (occurrence: CH)
  Receive Date: 20131004
  Receipt Date: 20131004
  Transmission Date: 20140711
  Serious: Yes (Other)
  Sender: FDA-Public Use
  Company Number: CH-ROCHE-1281706

PATIENT
  Age: 85 Year
  Sex: Female

DRUGS (2)
  1. LUCENTIS [Suspect]
     Indication: AGE-RELATED MACULAR DEGENERATION
     Route: 050
     Dates: start: 20130513
  2. LUCENTIS [Suspect]
     Route: 050
     Dates: start: 20130715

REACTIONS (3)
  - Eye inflammation [Unknown]
  - Uveitis [Unknown]
  - Anterior chamber cell [Unknown]
